FAERS Safety Report 18867290 (Version 2)
Quarter: 2022Q2

REPORT INFORMATION
  Report Type: Spontaneous
  Country: US (occurrence: US)
  Receive Date: 20210209
  Receipt Date: 20220516
  Transmission Date: 20220720
  Serious: No
  Sender: FDA-Public Use
  Company Number: US-PFIZER INC-2021081244

PATIENT
  Sex: Female

DRUGS (1)
  1. VERAPAMIL HCL [Suspect]
     Active Substance: VERAPAMIL HYDROCHLORIDE
     Dosage: 120 MG

REACTIONS (6)
  - Migraine [Unknown]
  - Visual impairment [Unknown]
  - Drug ineffective [Unknown]
  - Stress [Unknown]
  - Product supply issue [Unknown]
  - Product dose omission issue [Unknown]
